FAERS Safety Report 8976751 (Version 1)
Quarter: 2012Q4

REPORT INFORMATION
  Report Type: 
  Country: US (occurrence: US)
  Receive Date: 20121219
  Receipt Date: 20121219
  Transmission Date: 20130627
  Serious: No
  Sender: FDA-Public Use
  Company Number: US-AMGEN-USASP2012060144

PATIENT
  Age: 63 Year
  Sex: Female

DRUGS (5)
  1. PROLIA [Suspect]
     Indication: OSTEOPOROSIS POSTMENOPAUSAL
     Dosage: UNK
     Dates: start: 20120111
  2. CELEXA                             /00582602/ [Concomitant]
  3. VITAMIN C                          /00008001/ [Concomitant]
  4. VITAMIN D /00107901/ [Concomitant]
  5. ANTIHYPERTENSIVES [Concomitant]

REACTIONS (8)
  - Pruritus [Unknown]
  - Rash [Unknown]
  - Nasopharyngitis [Unknown]
  - Cough [Unknown]
  - Lymphadenopathy [Unknown]
  - Ear pain [Unknown]
  - Injection site induration [Unknown]
  - Injection site scab [Unknown]
